FAERS Safety Report 4754135-4 (Version None)
Quarter: 2005Q3

REPORT INFORMATION
  Report Type: 
  Country: None (occurrence: None)
  Receive Date: 20050825
  Receipt Date: 20050107
  Transmission Date: 20060218
  Serious: Yes (Other)
  Sender: FDA-Public Use
  Company Number: HQWYE601712JAN05

PATIENT
  Age: 13 Year
  Sex: Female
  Weight: 45.4 kg

DRUGS (3)
  1. ADVIL [Suspect]
     Indication: PHARYNGOLARYNGEAL PAIN
     Dosage: ORAL
     Route: 048
     Dates: start: 20041101, end: 20041101
  2. ALBUTEROL [Concomitant]
  3. UNSPECIFIED ASTHMA MEDICATION (UNSPECIFIED ASTHMA MEDICATION) [Concomitant]

REACTIONS (1)
  - PHARYNGOLARYNGEAL PAIN [None]
